FAERS Safety Report 20099196 (Version 4)
Quarter: 2022Q1

REPORT INFORMATION
  Report Type: Spontaneous
  Country: US (occurrence: US)
  Receive Date: 20211122
  Receipt Date: 20220214
  Transmission Date: 20220423
  Serious: Yes (Hospitalization)
  Sender: FDA-Public Use
  Company Number: US-HORIZON THERAPEUTICS-HZN-2021-008941

PATIENT

DRUGS (1)
  1. PENNSAID [Suspect]
     Active Substance: DICLOFENAC SODIUM
     Indication: Osteoarthritis
     Dosage: USE 2 PUMPS BID
     Route: 065

REACTIONS (4)
  - Diarrhoea [Unknown]
  - COVID-19 pneumonia [Unknown]
  - Influenza [Unknown]
  - Product dose omission issue [Unknown]
